FAERS Safety Report 7487987-8 (Version None)
Quarter: 2011Q2

REPORT INFORMATION
  Report Type: 
  Country: None (occurrence: None)
  Receive Date: 20110518
  Receipt Date: 20110511
  Transmission Date: 20111010
  Serious: Yes (Other)
  Sender: FDA-Public Use
  Company Number: US-PFIZER INC-2011102427

PATIENT
  Sex: Male

DRUGS (2)
  1. CELEBREX [Suspect]
     Dosage: UNK
     Dates: end: 20110101
  2. ACETYLSALICYLIC ACID SRT [Suspect]
     Dosage: 81 MG, UNK
     Dates: end: 20110101

REACTIONS (1)
  - GASTROINTESTINAL HAEMORRHAGE [None]
